FAERS Safety Report 5696577-9 (Version None)
Quarter: 2008Q2

REPORT INFORMATION
  Report Type: 
  Country: None (occurrence: None)
  Receive Date: 20080404
  Receipt Date: 20080404
  Transmission Date: 20081010
  Serious: Yes (Hospitalization)
  Sender: FDA-Public Use
  Company Number: None

PATIENT
  Age: 60 Year
  Sex: Male
  Weight: 75 kg

DRUGS (10)
  1. ZACTIMA [Suspect]
     Indication: GLIOBLASTOMA MULTIFORME
     Dosage: 100MG PO QD
     Route: 048
     Dates: start: 20080212
  2. ZACTIMA [Suspect]
     Indication: GLIOBLASTOMA MULTIFORME
     Dosage: 100MG PO QD
     Route: 048
     Dates: start: 20080312
  3. GLEEVEC [Suspect]
     Indication: GLIOBLASTOMA MULTIFORME
     Dosage: 400MG PO QD
     Route: 048
     Dates: start: 20080212
  4. GLEEVEC [Suspect]
     Indication: GLIOBLASTOMA MULTIFORME
     Dosage: 400MG PO QD
     Route: 048
     Dates: start: 20080312
  5. HYDROXYUREA [Suspect]
     Dosage: 500MG PO BID
     Route: 048
  6. LISINOPRIL [Concomitant]
  7. DECADRON [Concomitant]
  8. NEXIUM [Concomitant]
  9. KEPPRA [Concomitant]
  10. HYDROCHLOROTHIAZIDE [Concomitant]

REACTIONS (3)
  - CONVULSION [None]
  - HYPONATRAEMIA [None]
  - PYREXIA [None]
